FAERS Safety Report 19381550 (Version 1)
Quarter: 2021Q2

REPORT INFORMATION
  Report Type: Spontaneous
  Country: DE (occurrence: DE)
  Receive Date: 20210607
  Receipt Date: 20210607
  Transmission Date: 20210717
  Serious: Yes (Death)
  Sender: FDA-Public Use
  Company Number: NVSC2021DE126867

PATIENT
  Sex: Male
  Weight: 76 kg

DRUGS (1)
  1. DABRAFENIB [Suspect]
     Active Substance: DABRAFENIB
     Indication: NON-SMALL CELL LUNG CANCER
     Dosage: 300 MG, QD
     Route: 065
     Dates: start: 20201130, end: 20210406

REACTIONS (3)
  - Renal failure [Fatal]
  - Respiratory failure [Fatal]
  - Neoplasm [Fatal]

NARRATIVE: CASE EVENT DATE: 20210505
